FAERS Safety Report 7811280-4 (Version None)
Quarter: 2011Q4

REPORT INFORMATION
  Report Type: 
  Country: None (occurrence: None)
  Receive Date: 20111012
  Receipt Date: 20111012
  Transmission Date: 20120403
  Serious: Yes (Life-Threatening, Hospitalization)
  Sender: FDA-Public Use
  Company Number: None

PATIENT
  Age: 60 Year
  Sex: Male

DRUGS (3)
  1. PEGINTERFERON ALFA-2A [Concomitant]
  2. TELAPREVIR 375MG 2 TABLETS EVERY [Suspect]
     Indication: HEPATITIS C
     Dosage: COMBINED WITH PEGINTERFERON + RIBAVIRIN)
     Dates: start: 20110726, end: 20110912
  3. RIBAVIRIN [Concomitant]

REACTIONS (4)
  - EOSINOPHILIA [None]
  - DRUG ERUPTION [None]
  - INDURATION [None]
  - ERYTHEMA [None]
